FAERS Safety Report 19497748 (Version 1)
Quarter: 2021Q3

REPORT INFORMATION
  Report Type: Spontaneous
  Country: US (occurrence: US)
  Receive Date: 20210706
  Receipt Date: 20210706
  Transmission Date: 20211014
  Serious: No
  Sender: FDA-Public Use
  Company Number: US-GLENMARK PHARMACEUTICALS-2021GMK053177

PATIENT
  Age: 79 Year
  Sex: Male
  Weight: 56.7 kg

DRUGS (3)
  1. RADICAVA [Suspect]
     Active Substance: EDARAVONE
     Dosage: 60 MILLIGRAM (SAME DOSE GIVEN FOR 10 DAYS OUT OF 14?DAY PERIODS, FOLLOWED BY 14?DAY DRUG?FREE PERIOD
     Route: 042
  2. RADICAVA [Suspect]
     Active Substance: EDARAVONE
     Indication: AMYOTROPHIC LATERAL SCLEROSIS
     Dosage: 60 MILLIGRAM, OVER 60 MINUTES, DAILY FOR 14 DAYS FOLLOWED BY A 14?DAY DRUG FREE PERIOD
     Route: 042
     Dates: start: 20200406
  3. RILUZOLE. [Suspect]
     Active Substance: RILUZOLE
     Indication: PRODUCT USED FOR UNKNOWN INDICATION
     Dosage: UNK
     Route: 065

REACTIONS (2)
  - Joint swelling [Unknown]
  - Gait deviation [Unknown]
